FAERS Safety Report 8289275-9 (Version None)
Quarter: 2012Q2

REPORT INFORMATION
  Report Type: 
  Country: None (occurrence: None)
  Receive Date: 20120417
  Receipt Date: 20120412
  Transmission Date: 20120825
  Serious: Yes (Hospitalization, Other)
  Sender: FDA-Public Use
  Company Number: PHHY2011TW110341

PATIENT
  Age: 39 Year
  Sex: Male

DRUGS (6)
  1. SULPIRIDE [Concomitant]
     Indication: DEPRESSIVE SYMPTOM
     Dosage: 200 MG, QD
  2. ARIPIPRAZOLE [Concomitant]
     Dosage: 5 MG, QD
  3. CITALOPRAM [Concomitant]
     Dosage: 10 MG, QD
  4. VALPROIC ACID [Interacting]
     Dosage: 1000 MG, QD
  5. QUETIAPINE [Interacting]
     Indication: DEPRESSION
     Dosage: 100 MG, QD
  6. VALPROIC ACID [Suspect]
     Indication: DEPRESSION
     Dosage: 1500 MG, QD

REACTIONS (10)
  - THIRST [None]
  - FATIGUE [None]
  - DEPRESSED MOOD [None]
  - DIABETES WITH HYPEROSMOLARITY [None]
  - METABOLIC ACIDOSIS [None]
  - APPETITE DISORDER [None]
  - BLOOD PRESSURE INCREASED [None]
  - BODY MASS INDEX DECREASED [None]
  - DRUG INTERACTION [None]
  - HEART RATE INCREASED [None]
